FAERS Safety Report 7713487-3 (Version None)
Quarter: 2011Q3

REPORT INFORMATION
  Report Type: 
  Country: None (occurrence: None)
  Receive Date: 20110826
  Receipt Date: 20110819
  Transmission Date: 20111222
  Serious: Yes (Life-Threatening, Hospitalization, Other)
  Sender: FDA-Public Use
  Company Number: DE-ABBOTT-11P-062-0847484-00

PATIENT
  Age: 77 Year
  Sex: Female

DRUGS (13)
  1. ASPIRINE 50 [Concomitant]
     Indication: PRODUCT USED FOR UNKNOWN INDICATION
  2. LEFLUNOMIDE [Concomitant]
     Indication: PRODUCT USED FOR UNKNOWN INDICATION
     Dates: end: 20101220
  3. ISMN 60 [Concomitant]
     Indication: PRODUCT USED FOR UNKNOWN INDICATION
  4. ARANA 20 [Concomitant]
     Indication: PRODUCT USED FOR UNKNOWN INDICATION
  5. PREDNISOLONE 5 [Concomitant]
     Indication: PRODUCT USED FOR UNKNOWN INDICATION
  6. BISOPROLOL 10 [Concomitant]
     Indication: PRODUCT USED FOR UNKNOWN INDICATION
  7. CORVATON 8 [Concomitant]
     Indication: PRODUCT USED FOR UNKNOWN INDICATION
  8. NEXIUM 10 [Concomitant]
     Indication: PRODUCT USED FOR UNKNOWN INDICATION
  9. PROTAPHANE 10 [Concomitant]
     Indication: PRODUCT USED FOR UNKNOWN INDICATION
  10. ACTRAPID [Concomitant]
     Indication: PRODUCT USED FOR UNKNOWN INDICATION
     Dosage: ACCORDING TO BLOOD GLUCOSE
  11. METHOTREXATE [Concomitant]
     Indication: PRODUCT USED FOR UNKNOWN INDICATION
     Dates: start: 20010101, end: 20090101
  12. HUMIRA [Suspect]
     Indication: RHEUMATOID ARTHRITIS
     Route: 058
     Dates: start: 20100601, end: 20100601
  13. ETANERCEPT [Suspect]
     Indication: PRODUCT USED FOR UNKNOWN INDICATION
     Dates: start: 20100701, end: 20101220

REACTIONS (11)
  - CORONARY ARTERY DISEASE [None]
  - TROPONIN T INCREASED [None]
  - CHEST PAIN [None]
  - DYSPNOEA [None]
  - COUGH [None]
  - PULMONARY EMBOLISM [None]
  - RESPIRATORY FAILURE [None]
  - METASTATIC BRONCHIAL CARCINOMA [None]
  - CORONARY ARTERY STENOSIS [None]
  - ACUTE MYOCARDIAL INFARCTION [None]
  - LUNG NEOPLASM [None]
